FAERS Safety Report 9350113 (Version 2)
Quarter: 2013Q3

REPORT INFORMATION
  Report Type: Spontaneous
  Country: US (occurrence: US)
  Receive Date: 20130616
  Receipt Date: 20130723
  Transmission Date: 20140515
  Serious: No
  Sender: FDA-Public Use
  Company Number: US-TEVA-411305USA

PATIENT
  Sex: 0

DRUGS (1)
  1. NUVIGIL [Suspect]

REACTIONS (1)
  - Rash [Recovered/Resolved]
